FAERS Safety Report 15631986 (Version 1)
Quarter: 2018Q4

REPORT INFORMATION
  Report Type: Spontaneous
  Country: US (occurrence: US)
  Receive Date: 20181118
  Receipt Date: 20181118
  Transmission Date: 20190205
  Serious: Yes (Life-Threatening, Hospitalization, Disabling, Other)
  Sender: FDA-Public Use
  Company Number: None

PATIENT
  Age: 67 Year
  Sex: Female
  Weight: 58.95 kg

DRUGS (1)
  1. OPDIVO [Suspect]
     Active Substance: NIVOLUMAB
     Indication: NEOPLASM MALIGNANT
     Dosage: ?          OTHER FREQUENCY:MONTHLY;?
     Route: 042
     Dates: start: 20161020, end: 20180612

REACTIONS (7)
  - Musculoskeletal disorder [None]
  - Dysarthria [None]
  - Loss of control of legs [None]
  - Gait inability [None]
  - Visual impairment [None]
  - Retinal detachment [None]
  - Ataxia [None]

NARRATIVE: CASE EVENT DATE: 20180612
